FAERS Safety Report 11043814 (Version 2)
Quarter: 2015Q2

REPORT INFORMATION
  Report Type: Report from Study
  Country: JP (occurrence: JP)
  Receive Date: 20150417
  Receipt Date: 20150623
  Transmission Date: 20150821
  Serious: No
  Sender: FDA-Public Use
  Company Number: JP-EISAI-201500363

PATIENT
  Age: 61 Year
  Sex: Female

DRUGS (11)
  1. SILECE [Concomitant]
     Active Substance: FLUNITRAZEPAM
     Indication: INSOMNIA RELATED TO ANOTHER MENTAL CONDITION
     Dates: end: 20140923
  2. LUNESTA [Suspect]
     Active Substance: ESZOPICLONE
     Indication: INSOMNIA RELATED TO ANOTHER MENTAL CONDITION
     Route: 048
     Dates: start: 20140924, end: 20141007
  3. GASMOTIN [Concomitant]
     Active Substance: MOSAPRIDE CITRATE
     Indication: CHRONIC GASTRITIS
  4. ABILIT [Concomitant]
     Active Substance: SULPIRIDE
     Indication: DEPRESSION
     Dates: start: 20130924
  5. SILECE [Concomitant]
     Active Substance: FLUNITRAZEPAM
     Indication: INSOMNIA RELATED TO ANOTHER MENTAL CONDITION
     Dates: start: 20140924, end: 20141007
  6. DEPAKENE [Concomitant]
     Active Substance: VALPROIC ACID
     Indication: BIPOLAR DISORDER
  7. JZOLOFT [Concomitant]
     Active Substance: SERTRALINE HYDROCHLORIDE
     Indication: INSOMNIA RELATED TO ANOTHER MENTAL CONDITION
     Dates: start: 20140820, end: 20140924
  8. AMOBAN [Concomitant]
     Active Substance: ZOPICLONE
     Indication: INSOMNIA RELATED TO ANOTHER MENTAL CONDITION
     Dates: start: 20141008
  9. SILECE [Concomitant]
     Active Substance: FLUNITRAZEPAM
     Indication: INSOMNIA RELATED TO ANOTHER MENTAL CONDITION
     Dates: start: 20141008
  10. WYPAX [Concomitant]
     Active Substance: LORAZEPAM
     Indication: NEUROSIS
  11. MEVALOTIN [Concomitant]
     Active Substance: PRAVASTATIN SODIUM
     Indication: LIPID METABOLISM DISORDER

REACTIONS (1)
  - Affective disorder [Recovering/Resolving]

NARRATIVE: CASE EVENT DATE: 20141008
